FAERS Safety Report 22134581 (Version 1)
Quarter: 2023Q1

REPORT INFORMATION
  Report Type: Spontaneous
  Country: US (occurrence: US)
  Receive Date: 20230324
  Receipt Date: 20230324
  Transmission Date: 20230418
  Serious: Yes (Life-Threatening, Hospitalization)
  Sender: FDA-Public Use
  Company Number: US-MYLANLABS-2023M1030412

PATIENT
  Age: 55 Year
  Sex: Female

DRUGS (1)
  1. IBUTILIDE [Suspect]
     Active Substance: IBUTILIDE
     Indication: Cardioversion
     Dosage: UNK
     Route: 065

REACTIONS (3)
  - Cardiogenic shock [Unknown]
  - Pulmonary oedema [Unknown]
  - Hypervolaemia [Unknown]
